FAERS Safety Report 9072843 (Version 1)
Quarter: 2013Q1

REPORT INFORMATION
  Report Type: Report from Study
  Country: US (occurrence: US)
  Receive Date: 20130129
  Receipt Date: 20130129
  Transmission Date: 20140127
  Serious: Yes (Hospitalization)
  Sender: FDA-Public Use
  Company Number: US-ABBOTT-12P-163-0942383-00

PATIENT
  Age: 23 Year
  Sex: Female

DRUGS (4)
  1. HUMIRA 40 MG/0.8 ML PEN [Suspect]
     Indication: CROHN^S DISEASE
     Dosage: LOADING DOSE
     Dates: start: 20120529
  2. LEVAQUIN [Suspect]
     Indication: PRODUCT USED FOR UNKNOWN INDICATION
     Route: 048
     Dates: start: 20120603, end: 20120606
  3. FLAGYL [Suspect]
     Indication: PRODUCT USED FOR UNKNOWN INDICATION
     Route: 048
     Dates: start: 20120603, end: 20120606
  4. VICODIN [Concomitant]
     Indication: PAIN
     Dosage: 7.5/750, 1 TABLET EVERY 6 HOURS

REACTIONS (4)
  - Crohn^s disease [Recovering/Resolving]
  - Abdominal pain [Unknown]
  - Pharyngeal oedema [Recovering/Resolving]
  - Swollen tongue [Recovering/Resolving]
